FAERS Safety Report 9221076 (Version 1)
Quarter: 2013Q2

REPORT INFORMATION
  Report Type: Spontaneous
  Country: US (occurrence: US)
  Receive Date: 20130409
  Receipt Date: 20130409
  Transmission Date: 20140414
  Serious: Yes (Other)
  Sender: FDA-Public Use
  Company Number: US-CELGENEUS-163-50794-13040228

PATIENT
  Sex: 0

DRUGS (4)
  1. VIDAZA [Suspect]
     Indication: MYELODYSPLASTIC SYNDROME
     Route: 065
  2. DOXIFLURIDINE [Suspect]
     Indication: MYELODYSPLASTIC SYNDROME
     Route: 065
  3. ADRIAMYCIN [Suspect]
     Indication: MYELODYSPLASTIC SYNDROME
     Route: 065
  4. CYCLOPHOSPHAMIDE [Suspect]
     Indication: MYELODYSPLASTIC SYNDROME
     Route: 065

REACTIONS (3)
  - Acute myeloid leukaemia [Unknown]
  - Toxicity to various agents [Unknown]
  - No therapeutic response [Unknown]
